FAERS Safety Report 11328191 (Version 1)
Quarter: 2015Q3

REPORT INFORMATION
  Report Type: Spontaneous
  Country: US (occurrence: US)
  Receive Date: 20150731
  Receipt Date: 20150731
  Transmission Date: 20151125
  Serious: Yes (Other)
  Sender: FDA-Public Use
  Company Number: US-CELGENEUS-USA-2015074147

PATIENT
  Sex: Female

DRUGS (2)
  1. REVLIMID [Suspect]
     Active Substance: LENALIDOMIDE
     Indication: ACUTE LEUKAEMIA
  2. REVLIMID [Suspect]
     Active Substance: LENALIDOMIDE
     Indication: ACUTE LEUKAEMIA
     Dosage: 5 MILLIGRAM
     Route: 048
     Dates: start: 201401

REACTIONS (1)
  - Herpes zoster [Unknown]
